FAERS Safety Report 6249604-4 (Version None)
Quarter: 2009Q2

REPORT INFORMATION
  Report Type: 
  Country: None (occurrence: None)
  Receive Date: 20090625
  Receipt Date: 20090625
  Transmission Date: 20091009
  Serious: Yes (Hospitalization)
  Sender: FDA-Public Use
  Company Number: None

PATIENT
  Age: 62 Year
  Sex: Male
  Weight: 113.3993 kg

DRUGS (1)
  1. ZOLPIDEM 20MG VA HOSPITAL [Suspect]
     Indication: POST-TRAUMATIC STRESS DISORDER
     Dosage: 1 CAPSULE 1 PO
     Route: 048
     Dates: start: 19990101, end: 20090624

REACTIONS (8)
  - AMNESIA [None]
  - BACK PAIN [None]
  - DISORIENTATION [None]
  - LOSS OF CONSCIOUSNESS [None]
  - MUSCULOSKELETAL PAIN [None]
  - ROAD TRAFFIC ACCIDENT [None]
  - SOMNOLENCE [None]
  - WRONG DRUG ADMINISTERED [None]
